FAERS Safety Report 11577693 (Version 1)
Quarter: 2015Q3

REPORT INFORMATION
  Report Type: Spontaneous
  Country: GB (occurrence: GB)
  Receive Date: 20150930
  Receipt Date: 20150930
  Transmission Date: 20151125
  Serious: Yes (Death)
  Sender: FDA-Public Use
  Company Number: GB-JNJFOC-20150918859

PATIENT
  Age: 38 Year
  Sex: Male

DRUGS (3)
  1. KETAMINE [Suspect]
     Active Substance: KETAMINE
     Indication: SLEEP DISORDER
     Route: 065
  2. OXYCODONE HYDROCHLORIDE. [Suspect]
     Active Substance: OXYCODONE HYDROCHLORIDE
     Indication: SLEEP DISORDER
     Route: 065
  3. FENTANYL. [Suspect]
     Active Substance: FENTANYL
     Indication: SLEEP DISORDER
     Route: 062

REACTIONS (3)
  - Drug abuse [Fatal]
  - Product use issue [Unknown]
  - Drug diversion [Fatal]
